FAERS Safety Report 14930605 (Version 3)
Quarter: 2018Q2

REPORT INFORMATION
  Report Type: Spontaneous
  Country: FR (occurrence: FR)
  Receive Date: 20180523
  Receipt Date: 20180621
  Transmission Date: 20180711
  Serious: Yes (Hospitalization)
  Sender: FDA-Public Use
  Company Number: FR-TEVA-2018-FR-895169

PATIENT
  Age: 66 Year
  Sex: Male

DRUGS (26)
  1. TAZOCILLINE 4 G/500 MG [Suspect]
     Active Substance: PIPERACILLIN SODIUM\TAZOBACTAM SODIUM
     Indication: INTERVERTEBRAL DISCITIS
     Dosage: 3 DOSAGE FORMS DAILY;
     Route: 042
     Dates: start: 20180121, end: 20180128
  2. PREDNISONE. [Concomitant]
     Active Substance: PREDNISONE
     Dosage: 10 MILLIGRAM DAILY;
  3. HEPARINE SODIQUE PANPHARMA [Suspect]
     Active Substance: HEPARIN SODIUM
     Indication: EMBOLISM VENOUS
     Dosage: 60000 IU (INTERNATIONAL UNIT) DAILY; PLUSIEURS POSOLOGIES DE 60000 UI/JOUR A 25000 UI/JOUR
     Route: 058
     Dates: start: 20180129, end: 20180214
  4. RIFADINE [Suspect]
     Active Substance: RIFAMPIN
     Indication: INTERVERTEBRAL DISCITIS
     Dosage: 1200 MILLIGRAM DAILY; 2-0-2
     Route: 048
     Dates: start: 20180129, end: 20180207
  5. ATORVASTATINE [Concomitant]
     Active Substance: ATORVASTATIN
     Dosage: 10 MILLIGRAM DAILY;
  6. OXYCODONE [Concomitant]
     Active Substance: OXYCODONE
     Dosage: 5 MG, EVERY 4 HRS
  7. MOVICOL [Suspect]
     Active Substance: POLYETHYLENE GLYCOL 3350\POTASSIUM CHLORIDE\SODIUM BICARBONATE\SODIUM CHLORIDE
     Indication: CONSTIPATION
     Dosage: 10 GRAM DAILY; 1-0-0
     Route: 048
     Dates: end: 20180214
  8. LASILIX SPECIAL 250 MG/25 ML, [Suspect]
     Active Substance: FUROSEMIDE
     Indication: INTERVERTEBRAL DISCITIS
     Dosage: INJECTABLE BULB SOLUTION
     Route: 042
     Dates: start: 20180203, end: 20180205
  9. LOVENOX [Suspect]
     Active Substance: ENOXAPARIN SODIUM
     Indication: EMBOLISM VENOUS
     Route: 058
     Dates: start: 20180118, end: 20180129
  10. OXYCODONE [Concomitant]
     Active Substance: OXYCODONE
     Dosage: 80 MILLIGRAM DAILY;
  11. SILODOSINE [Concomitant]
     Active Substance: SILODOSIN
  12. PANTOPRAZOLE [Suspect]
     Active Substance: PANTOPRAZOLE
     Indication: GASTROINTESTINAL HAEMORRHAGE
     Dosage: 8 MILLIGRAM DAILY;
     Route: 042
     Dates: start: 20180202, end: 20180205
  13. OMEPRAZOLE. [Concomitant]
     Active Substance: OMEPRAZOLE
  14. CALCIPARINE [Suspect]
     Active Substance: HEPARIN CALCIUM
     Indication: EMBOLISM VENOUS
     Route: 058
     Dates: start: 20180214
  15. LEVOTHYROX [Concomitant]
     Active Substance: LEVOTHYROXINE
  16. DILTIAZEM. [Concomitant]
     Active Substance: DILTIAZEM
     Dosage: 200 MILLIGRAM DAILY;
  17. METHOTREXATE. [Concomitant]
     Active Substance: METHOTREXATE
  18. POLYETHYLENE GLYCOL [Concomitant]
     Active Substance: POLYETHYLENE GLYCOLS
  19. VANCOMYCINE SANDOZ [Suspect]
     Active Substance: VANCOMYCIN
     Indication: INTERVERTEBRAL DISCITIS
     Dosage: 3500 MILLIGRAM DAILY;  POWDER FOR INFUSION SOLUTION
     Route: 048
     Dates: start: 20180121, end: 20180124
  20. ERYTHROMYCINE [Suspect]
     Active Substance: ERYTHROMYCIN
     Indication: INTERVERTEBRAL DISCITIS
     Route: 042
     Dates: start: 20180202, end: 20180202
  21. VALSARTAN. [Concomitant]
     Active Substance: VALSARTAN
     Dosage: 80 MILLIGRAM DAILY;
  22. LEFLUNOMIDE. [Concomitant]
     Active Substance: LEFLUNOMIDE
     Dosage: 20 MILLIGRAM DAILY;
     Dates: start: 2016
  23. TAVANIC [Suspect]
     Active Substance: LEVOFLOXACIN
     Indication: INTERVERTEBRAL DISCITIS
     Dosage: 2000 MILLIGRAM DAILY; 1-0-1?TABLET COATED SCORED
     Route: 048
     Dates: start: 20180129, end: 20180205
  24. ETANERCEPT [Concomitant]
     Active Substance: ETANERCEPT
     Dates: start: 2016, end: 201803
  25. DUOTRAV 40 MICROGRAMMES/ML + 5 MG/ML, [Suspect]
     Active Substance: TIMOLOL\TRAVOPROST
     Indication: GLAUCOMA
     Dosage: 2 GTT DAILY; 1 GOUTTE MATIN ET SOIR (2 YEUX)
     Route: 047
     Dates: start: 20180122, end: 20180214
  26. OFLOCET [Suspect]
     Active Substance: OFLOXACIN
     Indication: URINARY TRACT INFECTION
     Dosage: NON RENSEIGNEE
     Route: 048
     Dates: start: 20180109, end: 20180116

REACTIONS (1)
  - Drug reaction with eosinophilia and systemic symptoms [Not Recovered/Not Resolved]

NARRATIVE: CASE EVENT DATE: 20180126
